APPROVED DRUG PRODUCT: PURIFIED CORTROPHIN GEL
Active Ingredient: CORTICOTROPIN
Strength: 40 UNITS/ML
Dosage Form/Route: INJECTABLE;INJECTION
Application: N008975 | Product #001
Applicant: ANI PHARMACEUTICALS INC
Approved: Approved Prior to Jan 1, 1982 | RLD: No | RS: No | Type: DISCN

PATENTS:
Patent 12102662 | Expires: Oct 27, 2043
Patent 12102662 | Expires: Oct 27, 2043
Patent 12102662 | Expires: Oct 27, 2043
Patent 12102662 | Expires: Oct 27, 2043
Patent 12102662 | Expires: Oct 27, 2043
Patent 12102662 | Expires: Oct 27, 2043
Patent 12102662 | Expires: Oct 27, 2043
Patent 12102662 | Expires: Oct 27, 2043
Patent 12102662 | Expires: Oct 27, 2043
Patent 12102662 | Expires: Oct 27, 2043
Patent 12102662 | Expires: Oct 27, 2043
Patent 12102662 | Expires: Oct 27, 2043
Patent 12102662 | Expires: Oct 27, 2043
Patent 12102662 | Expires: Oct 27, 2043
Patent 12102662 | Expires: Oct 27, 2043
Patent 12102662 | Expires: Oct 27, 2043
Patent 12102662 | Expires: Oct 27, 2043
Patent 12102662 | Expires: Oct 27, 2043
Patent 12102662 | Expires: Oct 27, 2043
Patent 12102662 | Expires: Oct 27, 2043
Patent 12102662 | Expires: Oct 27, 2043
Patent 12102662 | Expires: Oct 27, 2043
Patent 12102662 | Expires: Oct 27, 2043